FAERS Safety Report 7286889-X (Version None)
Quarter: 2011Q1

REPORT INFORMATION
  Report Type: 
  Country: None (occurrence: None)
  Receive Date: 20110211
  Receipt Date: 20110131
  Transmission Date: 20110831
  Serious: Yes (Hospitalization)
  Sender: FDA-Public Use
  Company Number: US-BIOGENIDEC-2010BI044279

PATIENT
  Age: 31 Year
  Sex: Female
  Weight: 74 kg

DRUGS (4)
  1. ZYRTEC [Concomitant]
     Indication: PRODUCT USED FOR UNKNOWN INDICATION
  2. TYLENOL-500 [Concomitant]
     Indication: PRODUCT USED FOR UNKNOWN INDICATION
  3. TYSABRI [Suspect]
     Indication: MULTIPLE SCLEROSIS
     Route: 042
     Dates: start: 20090529, end: 20101119
  4. ORTHO-TRICYCLIC [Concomitant]
     Indication: CONTRACEPTION

REACTIONS (1)
  - HEPATITIS ACUTE [None]
